FAERS Safety Report 5826168-8 (Version None)
Quarter: 2008Q2

REPORT INFORMATION
  Report Type: 
  Country: None (occurrence: None)
  Receive Date: 20080601
  Receipt Date: 20080217
  Transmission Date: 20081010
  Serious: No
  Sender: FDA-Public Use
  Company Number: US200802003865

PATIENT
  Age: 68 Year
  Sex: Female

DRUGS (4)
  1. BYETTA [Suspect]
     Indication: TYPE 2 DIABETES MELLITUS
     Dosage: 5 UG, 2/D, SUBCUTANEOUS
     Route: 058
     Dates: start: 20080214, end: 20080215
  2. METFORMIN HCL [Concomitant]
  3. GLIPIZIDE [Concomitant]
  4. ENBREL [Concomitant]

REACTIONS (8)
  - BLOOD GLUCOSE DECREASED [None]
  - CRYING [None]
  - DIZZINESS [None]
  - DRY MOUTH [None]
  - HYPERSOMNIA [None]
  - INCOHERENT [None]
  - NAUSEA [None]
  - URINARY INCONTINENCE [None]
